FAERS Safety Report 17070053 (Version 1)
Quarter: 2019Q4

REPORT INFORMATION
  Report Type: Spontaneous
  Country: US (occurrence: US)
  Receive Date: 20191125
  Receipt Date: 20191125
  Transmission Date: 20200122
  Serious: Yes (Congenital Anomaly)
  Sender: FDA-Public Use
  Company Number: US-TEVA-2019-US-1142731

PATIENT
  Age: 2 Month
  Sex: Female

DRUGS (2)
  1. MELPHALAN. [Suspect]
     Active Substance: MELPHALAN
     Indication: CONGENITAL RETINOBLASTOMA
     Dosage: 6 SESSIONS SCHEDULED WITH DOSE OF 20-30MICROG/0.1-0.15 CC, 3 INJECTIONS WERE ADMINISTERED
  2. TOPOTECAN [Suspect]
     Active Substance: TOPOTECAN HYDROCHLORIDE
     Indication: CONGENITAL RETINOBLASTOMA
     Dosage: 6 SESSIONS SCHEDULED WITH DOSE OF 20-30MICROG/0.1-0.15 CC, 3 INJECTIONS WERE ADMINISTERED

REACTIONS (1)
  - Heterochromia iridis [Not Recovered/Not Resolved]
